FAERS Safety Report 8247119-5 (Version None)
Quarter: 2012Q1

REPORT INFORMATION
  Report Type: 
  Country: None (occurrence: None)
  Receive Date: 20120330
  Receipt Date: 20120323
  Transmission Date: 20120608
  Serious: Yes (Hospitalization)
  Sender: FDA-Public Use
  Company Number: CA-JNJFOC-20120314088

PATIENT
  Sex: Male

DRUGS (2)
  1. INDOMETHACIN [Concomitant]
  2. SIMPONI [Suspect]
     Indication: PRODUCT USED FOR UNKNOWN INDICATION
     Route: 058

REACTIONS (4)
  - DEEP VEIN THROMBOSIS [None]
  - FREQUENT BOWEL MOVEMENTS [None]
  - EXTRASYSTOLES [None]
  - ARTHROPATHY [None]
